FAERS Safety Report 17959727 (Version 3)
Quarter: 2021Q1

REPORT INFORMATION
  Report Type: Report from Study
  Country: DE (occurrence: DE)
  Receive Date: 20200629
  Receipt Date: 20210119
  Transmission Date: 20210419
  Serious: Yes (Life-Threatening, Hospitalization)
  Sender: FDA-Public Use
  Company Number: DE-JNJFOC-20200632190

PATIENT
  Age: 66 Year
  Sex: Male
  Weight: 64 kg

DRUGS (24)
  1. RAMIPRIL HEXAL [Concomitant]
     Active Substance: RAMIPRIL
     Dosage: 5 MG, QD
     Dates: start: 201802
  2. SORTIS [Concomitant]
     Active Substance: ATORVASTATIN
     Dosage: 40 MG, QD
     Dates: start: 20200216
  3. BELOC ZOK [Concomitant]
     Active Substance: METOPROLOL SUCCINATE
     Dosage: 95 MG, BID
     Dates: start: 20180219
  4. PREGABALIN. [Concomitant]
     Active Substance: PREGABALIN
     Dosage: 75 MG, QD
     Dates: start: 20200528
  5. METAMIZOLE SODIUM [Concomitant]
     Active Substance: METAMIZOLE SODIUM
     Dosage: 500 MG, QID
     Dates: start: 201802, end: 20200612
  6. ACETYLSALICYLIC ACID [Suspect]
     Active Substance: ASPIRIN
     Indication: CARDIOVASCULAR EVENT PROPHYLAXIS
     Dosage: 100 MG, QD
     Route: 065
     Dates: start: 20180219, end: 20200515
  7. ACETYLSALICYLIC ACID [Suspect]
     Active Substance: ASPIRIN
     Dosage: 100 MG, QD
     Route: 065
     Dates: start: 20200526
  8. SORTIS [Concomitant]
     Active Substance: ATORVASTATIN
     Dosage: 20 MG, QD
     Dates: start: 20180219, end: 20200215
  9. CLEXANE [Concomitant]
     Active Substance: ENOXAPARIN SODIUM
     Dosage: 0.4 ML, QD
     Dates: start: 201802, end: 20200515
  10. OXAZEPAM RATIOPHARM [Concomitant]
     Dosage: 10 MG, QD
     Dates: start: 20200601
  11. CLOPIDOGREL [Concomitant]
     Active Substance: CLOPIDOGREL BISULFATE
     Dosage: 75 MG, QD
     Dates: start: 201802
  12. SIMVAHEXAL [Concomitant]
     Active Substance: SIMVASTATIN
     Dosage: 20 MG, QD
     Dates: start: 20180219, end: 20200428
  13. CLEXANE [Concomitant]
     Active Substance: ENOXAPARIN SODIUM
     Dosage: 0.6 ML, QD
     Dates: start: 20200528
  14. RIVAROXABAN [Suspect]
     Active Substance: RIVAROXABAN
     Indication: PERIPHERAL ARTERIAL OCCLUSIVE DISEASE
  15. ACETYLSALICYLIC ACID [Suspect]
     Active Substance: ASPIRIN
     Indication: PERIPHERAL ARTERIAL OCCLUSIVE DISEASE
     Dosage: 100 MG, QD
     Route: 065
     Dates: start: 20200521, end: 20200525
  16. RAMIPRIL HEXAL [Concomitant]
     Active Substance: RAMIPRIL
     Dosage: 2.5 MG, QD
     Dates: start: 20200429
  17. RIVAROXABAN [Suspect]
     Active Substance: RIVAROXABAN
     Indication: CORONARY ARTERY DISEASE
  18. NOVAMINSULFON?RATIOPHARM [Concomitant]
     Active Substance: METAMIZOLE
     Dosage: 40 DROP
     Dates: start: 20180219
  19. RIVAROXABAN [Suspect]
     Active Substance: RIVAROXABAN
     Indication: CARDIOVASCULAR EVENT PROPHYLAXIS
     Dosage: 2.5 MG, BID
     Route: 048
     Dates: start: 20200511, end: 20200514
  20. ACETYLSALICYLIC ACID [Suspect]
     Active Substance: ASPIRIN
     Indication: CORONARY ARTERY DISEASE
     Dosage: 100 MG, QD
     Route: 065
     Dates: start: 20200516, end: 20200519
  21. PANTOPRAZOLE [Concomitant]
     Active Substance: PANTOPRAZOLE
     Dosage: 40 MG, QD
     Dates: start: 20200610
  22. PREGABALIN. [Concomitant]
     Active Substance: PREGABALIN
     Dosage: 25 MG (2?2?1)
     Dates: start: 20200528
  23. DUROGESIC SMAT [Concomitant]
     Active Substance: FENTANYL
     Dosage: 12UG/L
     Dates: start: 20200528
  24. CLOPIDOGREL [Concomitant]
     Active Substance: CLOPIDOGREL BISULFATE
     Indication: ANTIPLATELET THERAPY
     Dosage: 75 MG, QD
     Dates: start: 20181215, end: 20200510

REACTIONS (5)
  - Arterial bypass occlusion [Recovered/Resolved]
  - Arterial bypass occlusion [Recovered/Resolved]
  - Arterial occlusive disease [Recovered/Resolved]
  - Arterial haemorrhage [Recovered/Resolved]
  - Haemorrhage [Recovered/Resolved]

NARRATIVE: CASE EVENT DATE: 20200514
